FAERS Safety Report 7937901-3 (Version None)
Quarter: 2011Q4

REPORT INFORMATION
  Report Type: 
  Country: None (occurrence: None)
  Receive Date: 20111123
  Receipt Date: 20111114
  Transmission Date: 20120403
  Serious: Yes (Hospitalization, Other)
  Sender: FDA-Public Use
  Company Number: US-BAYER-2011-028229

PATIENT
  Age: 26 Year
  Sex: Female
  Weight: 106.58 kg

DRUGS (3)
  1. YAZ [Suspect]
     Indication: CONTRACEPTION
     Dosage: UNK
     Dates: start: 20061213, end: 20070816
  2. NSAID'S [Concomitant]
     Dosage: UNK
     Route: 048
     Dates: start: 20010101
  3. ACETAMINOPHEN [Concomitant]
     Dosage: UNK
     Dates: start: 20091001

REACTIONS (6)
  - CHOLECYSTITIS ACUTE [None]
  - PAIN [None]
  - ANXIETY [None]
  - PANCREATITIS [None]
  - CHOLELITHIASIS [None]
  - ANHEDONIA [None]
